FAERS Safety Report 5076453-5 (Version None)
Quarter: 2006Q3

REPORT INFORMATION
  Report Type: 
  Country: None (occurrence: None)
  Receive Date: 20060810
  Receipt Date: 20060804
  Transmission Date: 20061208
  Serious: Yes (Hospitalization)
  Sender: FDA-Public Use
  Company Number: FR-SOLVAY-00306002515

PATIENT
  Age: 51 Year
  Sex: Male

DRUGS (3)
  1. ANDROGEL [Suspect]
     Indication: HYPOGONADISM
     Dosage: DAILY DOSE: 50 MILLIGRAM(S)
     Route: 003
  2. PANTESTONE [Suspect]
     Indication: HYPOGONADISM
     Dosage: DAILY DOSE:  UNKNOWN
     Route: 065
  3. NORPROLAC [Suspect]
     Indication: ILL-DEFINED DISORDER
     Dosage: DAILY DOSE:  UNKNOWN
     Route: 065

REACTIONS (1)
  - MYOCARDIAL INFARCTION [None]
